FAERS Safety Report 6331162-7 (Version None)
Quarter: 2009Q3

REPORT INFORMATION
  Report Type: 
  Country: None (occurrence: None)
  Receive Date: 20090827
  Receipt Date: 20090727
  Transmission Date: 20100115
  Serious: No
  Sender: FDA-Public Use
  Company Number: US-BAYER-200913029BCC

PATIENT
  Age: 78 Year
  Sex: Male
  Weight: 72 kg

DRUGS (2)
  1. ALEVE [Suspect]
     Indication: ARTHRALGIA
     Dosage: TOTAL DAILY DOSE: 440 MG  UNIT DOSE: 220 MG
     Route: 048
     Dates: start: 20090722, end: 20090723
  2. ALEVE [Suspect]
     Dosage: TOTAL DAILY DOSE: 220 MG
     Route: 048
     Dates: start: 20090724, end: 20090724

REACTIONS (3)
  - ABDOMINAL PAIN [None]
  - FLATULENCE [None]
  - NAUSEA [None]
